FAERS Safety Report 8543516-9 (Version None)
Quarter: 2012Q3

REPORT INFORMATION
  Report Type: 
  Country: None (occurrence: None)
  Receive Date: 20120727
  Receipt Date: 20120725
  Transmission Date: 20120928
  Serious: Yes (Hospitalization, Other)
  Sender: FDA-Public Use
  Company Number: PHEH2007US016486

PATIENT
  Sex: Female
  Weight: 74.83 kg

DRUGS (64)
  1. AROMASIN [Concomitant]
     Indication: LUNG NEOPLASM
     Dosage: 25 MG, QD
     Dates: start: 20000101
  2. CARTIA                                  /USA/ [Concomitant]
  3. ELAVIL [Concomitant]
  4. KENALOG [Concomitant]
  5. PERIDEX [Concomitant]
  6. AMITRIPTYLINE HYDROCHLORIDE [Concomitant]
  7. ZAROXOLYN [Concomitant]
  8. PRAVASTATIN SODIUM [Concomitant]
  9. SYNVISC [Concomitant]
  10. DARVOCET-N 50 [Concomitant]
  11. ADVAIR [Concomitant]
  12. PROTEINASE INHIBITORS [Concomitant]
  13. B12 ^RECIP^ [Concomitant]
  14. TIAZAC [Concomitant]
  15. FUROSEMIDE [Concomitant]
  16. BLOOD TRANSFUSION, AUXILIARY PRODUCTS [Concomitant]
  17. CITALOPRAM HYDROBROMIDE [Concomitant]
  18. LORCET-HD [Concomitant]
  19. ZOFRAN [Concomitant]
  20. SPIRONOLACTONE [Concomitant]
  21. COZAAR [Concomitant]
     Dosage: 100 MG, QD
  22. CRESTOR [Concomitant]
     Dosage: 110 MG, QD
  23. IRON [Concomitant]
     Dates: start: 20010101
  24. SYNTHROID [Concomitant]
     Dosage: 0.125 MG, QD
  25. FLONASE [Concomitant]
  26. PROTONIX [Concomitant]
  27. DILANTIN W/PHENOBARBITAL [Concomitant]
  28. INSULIN [Concomitant]
  29. ZYLOPRIM [Concomitant]
  30. ZOMETA [Suspect]
     Indication: CALCIUM DEFICIENCY
  31. KLOR-CON [Concomitant]
     Dosage: 10 MEQ, QD
  32. CENTRUM [Concomitant]
  33. AMBIEN [Concomitant]
     Dosage: 10 MG, PRN
  34. XANAX [Concomitant]
     Dosage: 0.5 MG, PRN
  35. CELEXA [Concomitant]
     Dosage: 40 MG, QD
  36. COUMADIN [Concomitant]
  37. ACIPHEX [Concomitant]
     Dosage: 20 MG, QD
     Route: 048
     Dates: start: 20080910
  38. FELDENE [Concomitant]
  39. PROPOXYPHENE HCL AND ACETAMINOPHEN [Concomitant]
  40. ZOMETA [Suspect]
     Indication: NEOPLASM MALIGNANT
     Dosage: 4 MG, QMO
     Dates: start: 20020725, end: 20071120
  41. TAMOXIFEN [Concomitant]
  42. RADIATION THERAPY [Concomitant]
  43. MULTIPLE VITAMIN [Concomitant]
  44. MIRTAZAPINE [Concomitant]
     Dosage: 30 MG,
     Dates: start: 20071022
  45. ASTELIN [Concomitant]
  46. ALPRAZOLAM [Concomitant]
  47. CITRICAL [Concomitant]
  48. LASIX [Concomitant]
  49. CALTRATE +D [Concomitant]
  50. NEXIUM [Concomitant]
  51. MACROBID [Concomitant]
     Dosage: 100 MG, QD
     Dates: start: 20081106
  52. ZETIA [Concomitant]
     Dates: start: 20081108
  53. ALBUTEROL [Concomitant]
  54. REQUIP [Concomitant]
  55. VITAMIN C AND E [Concomitant]
  56. ZOMETA [Suspect]
     Indication: METASTASES TO SPINE
  57. LORTAB [Concomitant]
  58. HYDROCHLOROTHIAZIDE [Concomitant]
     Dosage: 25 MG, QD
  59. POTASSIUM CHLORIDE [Concomitant]
  60. EFFEXOR [Concomitant]
     Dosage: 75 MG, QD
     Dates: start: 20081108
  61. VIOXX [Concomitant]
  62. ASPIRIN [Concomitant]
  63. PROTONIX [Concomitant]
  64. MILK OF MAGNESIA TAB [Concomitant]

REACTIONS (100)
  - OSTEONECROSIS [None]
  - HYPERTROPHIC CARDIOMYOPATHY [None]
  - PAIN [None]
  - DEFORMITY [None]
  - ATRIAL FIBRILLATION [None]
  - CONSTIPATION [None]
  - BILE DUCT STENOSIS [None]
  - LUNG NEOPLASM [None]
  - HIATUS HERNIA [None]
  - JOINT DISLOCATION [None]
  - OSTEOARTHRITIS [None]
  - HYPERTENSION [None]
  - INJURY [None]
  - DENTAL FISTULA [None]
  - SWELLING [None]
  - PAIN IN JAW [None]
  - FOOT DEFORMITY [None]
  - HYPERLIPIDAEMIA [None]
  - HYPOTHYROIDISM [None]
  - KYPHOSIS [None]
  - CENTRAL NERVOUS SYSTEM LESION [None]
  - MYOPATHY [None]
  - ANXIETY [None]
  - HYPOPHAGIA [None]
  - PURULENT DISCHARGE [None]
  - DYSPHAGIA [None]
  - BLOOD CALCIUM INCREASED [None]
  - ACUTE SINUSITIS [None]
  - BALANCE DISORDER [None]
  - ARTHRALGIA [None]
  - CARDIAC FAILURE [None]
  - SPINAL OSTEOARTHRITIS [None]
  - BUNDLE BRANCH BLOCK LEFT [None]
  - EMPHYSEMA [None]
  - ASTHENIA [None]
  - TOOTH FRACTURE [None]
  - DISCOMFORT [None]
  - TOOTH LOSS [None]
  - RADICULOPATHY [None]
  - PARANASAL SINUS HYPERSECRETION [None]
  - DYSPNOEA [None]
  - FATIGUE [None]
  - INFECTION [None]
  - DRY MOUTH [None]
  - COLONIC POLYP [None]
  - JOINT EFFUSION [None]
  - CIRCULATORY COLLAPSE [None]
  - FACET JOINT SYNDROME [None]
  - GASTROOESOPHAGEAL REFLUX DISEASE [None]
  - EMOTIONAL DISTRESS [None]
  - BONE DISORDER [None]
  - GOITRE [None]
  - RHINITIS ALLERGIC [None]
  - HYPOCALCAEMIA [None]
  - STOMATITIS NECROTISING [None]
  - MITRAL VALVE INCOMPETENCE [None]
  - HAEMORRHOIDS [None]
  - CEREBRAL ATROPHY [None]
  - URINARY TRACT INFECTION [None]
  - PNEUMONIA [None]
  - OSTEONECROSIS OF JAW [None]
  - CHRONIC OBSTRUCTIVE PULMONARY DISEASE [None]
  - ABASIA [None]
  - PRIMARY SEQUESTRUM [None]
  - INTERVERTEBRAL DISC DEGENERATION [None]
  - THYROID CANCER [None]
  - GLUCOSE TOLERANCE IMPAIRED [None]
  - VIRAL INFECTION [None]
  - OTORRHOEA [None]
  - HYPERGLYCAEMIA [None]
  - ABDOMINAL PAIN [None]
  - COLITIS [None]
  - SYNCOPE [None]
  - SCOLIOSIS [None]
  - NEUROPATHY PERIPHERAL [None]
  - ATELECTASIS [None]
  - CORONARY ARTERY DISEASE [None]
  - MUSCULOSKELETAL PAIN [None]
  - HYPERKERATOSIS [None]
  - MOUTH ULCERATION [None]
  - OSTEOSCLEROSIS [None]
  - MUSCULOSKELETAL DISCOMFORT [None]
  - JOINT SWELLING [None]
  - SPINAL COLUMN STENOSIS [None]
  - LARYNGEAL OEDEMA [None]
  - HEPATIC CYST [None]
  - DYSKINESIA OESOPHAGEAL [None]
  - LUNG DISORDER [None]
  - BRAIN NEOPLASM [None]
  - DEPRESSION [None]
  - ANHEDONIA [None]
  - TENDERNESS [None]
  - STOMATITIS [None]
  - CYST [None]
  - HEADACHE [None]
  - DIZZINESS [None]
  - DIVERTICULUM INTESTINAL [None]
  - GRANULOMATOUS LIVER DISEASE [None]
  - ENCEPHALOMALACIA [None]
  - EXOSTOSIS [None]
